FAERS Safety Report 21596713 (Version 1)
Quarter: 2022Q4

REPORT INFORMATION
  Report Type: Spontaneous
  Country: IT (occurrence: IT)
  Receive Date: 20221115
  Receipt Date: 20221115
  Transmission Date: 20230113
  Serious: Yes (Other)
  Sender: FDA-Public Use
  Company Number: IT-SAMIL-GLO2022IT006471

PATIENT
  Age: 44 Year
  Sex: Female

DRUGS (16)
  1. CYTARABINE [Suspect]
     Active Substance: CYTARABINE
     Indication: Bone marrow conditioning regimen
     Dosage: 400 MG/M2, QD (?5 TO ?2)
  2. CYTARABINE [Suspect]
     Active Substance: CYTARABINE
     Indication: Stem cell transplant
  3. CYTARABINE [Suspect]
     Active Substance: CYTARABINE
     Indication: Diffuse large B-cell lymphoma stage IV
  4. CYTARABINE [Suspect]
     Active Substance: CYTARABINE
     Indication: Marginal zone lymphoma
  5. ETOPOSIDE [Suspect]
     Active Substance: ETOPOSIDE
     Indication: Bone marrow conditioning regimen
     Dosage: 200 MG/M2, QD (?5 TO ?2)
  6. ETOPOSIDE [Suspect]
     Active Substance: ETOPOSIDE
     Indication: Stem cell transplant
  7. ETOPOSIDE [Suspect]
     Active Substance: ETOPOSIDE
     Indication: Diffuse large B-cell lymphoma stage IV
  8. ETOPOSIDE [Suspect]
     Active Substance: ETOPOSIDE
     Indication: Marginal zone lymphoma
  9. FOTEMUSTINE [Suspect]
     Active Substance: FOTEMUSTINE
     Indication: Marginal zone lymphoma
     Dosage: 150 MG/M2, QD
  10. FOTEMUSTINE [Suspect]
     Active Substance: FOTEMUSTINE
     Indication: Stem cell transplant
  11. FOTEMUSTINE [Suspect]
     Active Substance: FOTEMUSTINE
     Indication: Bone marrow conditioning regimen
  12. FOTEMUSTINE [Suspect]
     Active Substance: FOTEMUSTINE
     Indication: Diffuse large B-cell lymphoma stage IV
  13. MELPHALAN [Suspect]
     Active Substance: MELPHALAN
     Indication: Diffuse large B-cell lymphoma stage IV
     Dosage: FREQ:{TOTAL};140 MG/M2, 1 DOSAGE TOTAL
  14. MELPHALAN [Suspect]
     Active Substance: MELPHALAN
     Indication: Stem cell transplant
  15. MELPHALAN [Suspect]
     Active Substance: MELPHALAN
     Indication: Marginal zone lymphoma
  16. MELPHALAN [Suspect]
     Active Substance: MELPHALAN
     Indication: Bone marrow conditioning regimen

REACTIONS (2)
  - Cytopenia [Unknown]
  - Infection [Unknown]
